FAERS Safety Report 6683281-3 (Version None)
Quarter: 2010Q2

REPORT INFORMATION
  Report Type: 
  Country: None (occurrence: None)
  Receive Date: 20100415
  Receipt Date: 20100413
  Transmission Date: 20101027
  Serious: No
  Sender: FDA-Public Use
  Company Number: US-B.I. PHARMACEUTICALS,INC./RIDGEFIELD-2009-BP-09915BP

PATIENT
  Sex: Female

DRUGS (11)
  1. SPIRIVA [Suspect]
     Indication: DYSPNOEA
     Dosage: 18 MCG
     Route: 055
     Dates: start: 20090707
  2. SPIRIVA [Suspect]
     Indication: CHRONIC OBSTRUCTIVE PULMONARY DISEASE
  3. NORVASC [Concomitant]
     Indication: HYPERTENSION
  4. TENORMIN [Concomitant]
     Indication: HYPERTENSION
  5. LASIX [Concomitant]
     Indication: HYPERTENSION
  6. IC KLOR-CON [Concomitant]
  7. ZESTORETIC [Concomitant]
  8. TRANENE [Concomitant]
  9. VITAMINS [Concomitant]
  10. GARLIC [Concomitant]
  11. CENTRUM [Concomitant]

REACTIONS (1)
  - DYSPNOEA [None]
